FAERS Safety Report 8984356 (Version 1)
Quarter: 2012Q4

REPORT INFORMATION
  Report Type: 
  Country: US (occurrence: US)
  Receive Date: 20121226
  Receipt Date: 20121226
  Transmission Date: 20130627
  Serious: Yes (Other)
  Sender: FDA-Public Use
  Company Number: US-PURDUE-USA-2012-0097147

PATIENT
  Sex: Female

DRUGS (1)
  1. BUTRANS [Suspect]
     Indication: NEURALGIA
     Dosage: 10 mcg/hr, UNK
     Route: 062

REACTIONS (2)
  - Malignant neoplasm progression [Unknown]
  - Pain [Unknown]
